FAERS Safety Report 18629999 (Version 2)
Quarter: 2021Q1

REPORT INFORMATION
  Report Type: Spontaneous
  Country: US (occurrence: US)
  Receive Date: 20201217
  Receipt Date: 20210113
  Transmission Date: 20210419
  Serious: Yes (Other)
  Sender: FDA-Public Use
  Company Number: US-TEVA-2020-US-1858528

PATIENT
  Age: 77 Year
  Sex: Male

DRUGS (8)
  1. VALSARTAN/HYDROCHLOROTHIAZIDE AUROBINDO [Suspect]
     Active Substance: HYDROCHLOROTHIAZIDE\VALSARTAN
     Dosage: DOSAGE: 160MG
     Route: 065
     Dates: start: 20170125, end: 20180504
  2. VALSARTAN/HYDROCHLOROTHIAZIDE PRINSTON [Suspect]
     Active Substance: HYDROCHLOROTHIAZIDE\VALSARTAN
     Indication: HYPERTENSION
     Dosage: DOSAGE: 160MG
     Route: 065
     Dates: start: 20180510, end: 20180808
  3. VALSARTAN AUROBINDO [Suspect]
     Active Substance: VALSARTAN
     Indication: HYPERTENSION
     Dosage: 80 MILLIGRAM DAILY; DOSAGE: 80MG, 1 TABLET BY MOUTH, ONE A DAY
     Route: 048
     Dates: end: 202101
  4. OMEPRAZOLE. [Concomitant]
     Active Substance: OMEPRAZOLE
     Dosage: DOSAGE: 40 MG, DELAYED RELEASE
     Dates: start: 20181025
  5. VALSARTAN/HYDROCHLOROTHIAZIDE AUROBINDO [Suspect]
     Active Substance: HYDROCHLOROTHIAZIDE\VALSARTAN
     Indication: HYPERTENSION
     Dosage: DOSAGE: 160MG
     Route: 065
     Dates: start: 20150325, end: 20170125
  6. VALSARTAN/HYDROCHLOROTHIAZIDE AUROBINDO [Suspect]
     Active Substance: HYDROCHLOROTHIAZIDE\VALSARTAN
     Dosage: DOSAGE: 160MG
     Route: 065
     Dates: start: 20180813, end: 20190204
  7. SUCRALFATE. [Concomitant]
     Active Substance: SUCRALFATE
     Dosage: DOSAGE: 1GM
     Dates: start: 20181027
  8. MOMETASONE [Concomitant]
     Active Substance: MOMETASONE
     Dosage: DOSAGE: 01 PERCENT, TOPICAL
     Dates: start: 20181101

REACTIONS (1)
  - Gastric cancer [Unknown]
